FAERS Safety Report 5593370-2 (Version None)
Quarter: 2007Q4

REPORT INFORMATION
  Report Type: 
  Country: None (occurrence: None)
  Receive Date: 20071218
  Receipt Date: 20070320
  Transmission Date: 20080405
  Serious: Yes (Hospitalization, Other)
  Sender: FDA-Public Use
  Company Number: 2006138755

PATIENT
  Sex: Female

DRUGS (3)
  1. BEXTRA [Suspect]
     Indication: ARTHRITIS
     Dosage: 20 MG (20 MG,1 IN 1 D)
     Dates: start: 20040718
  2. BEXTRA [Suspect]
     Indication: PAIN MANAGEMENT
     Dosage: 20 MG (20 MG,1 IN 1 D)
     Dates: start: 20040718
  3. VIOXX [Suspect]
     Dosage: ORAL
     Route: 048
     Dates: start: 20030609

REACTIONS (1)
  - MYOCARDIAL INFARCTION [None]
